FAERS Safety Report 4945559-0 (Version None)
Quarter: 2006Q1

REPORT INFORMATION
  Report Type: 
  Country: None (occurrence: None)
  Receive Date: 20060117
  Receipt Date: 20050930
  Transmission Date: 20060701
  Serious: Yes (Hospitalization)
  Sender: FDA-Public Use
  Company Number: A03200503190

PATIENT
  Age: 75 Year
  Sex: Male
  Weight: 20.7 kg

DRUGS (2)
  1. PLAVIX [Suspect]
     Indication: CORONARY ARTERIAL STENT INSERTION
     Dosage: 75 MG QD ORAL
     Route: 048
     Dates: start: 20050808, end: 20051006
  2. ASPIRIN [Suspect]
     Indication: STENT PLACEMENT
     Dosage: 81 MG QD ORAL
     Route: 048
     Dates: start: 20050808, end: 20050801

REACTIONS (4)
  - BACK PAIN [None]
  - EPISTAXIS [None]
  - HAEMATURIA [None]
  - OCULAR HYPERAEMIA [None]
